FAERS Safety Report 14133197 (Version 1)
Quarter: 2017Q4

REPORT INFORMATION
  Report Type: Spontaneous
  Country: FR (occurrence: FR)
  Receive Date: 20171027
  Receipt Date: 20171027
  Transmission Date: 20180321
  Serious: Yes (Hospitalization)
  Sender: FDA-Public Use
  Company Number: FR-ACCORD-060299

PATIENT
  Age: 66 Year
  Sex: Female

DRUGS (3)
  1. PEMETREXED FRESENIUS KABI [Suspect]
     Active Substance: PEMETREXED
     Indication: LUNG ADENOCARCINOMA
     Dosage: ONE DF ONCE IN TOTAL
     Route: 042
     Dates: start: 20170710, end: 20170710
  2. CARBOPLATIN ACCORD [Suspect]
     Active Substance: CARBOPLATIN
     Indication: LUNG ADENOCARCINOMA
     Dosage: STRENGTH: 10 MG/ML?ONE DF THRICE IN TOTAL
     Route: 042
     Dates: start: 20170522, end: 20170710
  3. PACLITAXEL SANDOZ [Suspect]
     Active Substance: PACLITAXEL
     Indication: LUNG ADENOCARCINOMA
     Dosage: STRENGTH: 6 MG/ML?ONE DF TWICE IN TOTAL
     Route: 042
     Dates: start: 20170522, end: 20170619

REACTIONS (3)
  - Anaemia [Unknown]
  - Thrombocytopenia [Unknown]
  - Stress cardiomyopathy [Recovering/Resolving]

NARRATIVE: CASE EVENT DATE: 20170712
